FAERS Safety Report 6053252-9 (Version None)
Quarter: 2009Q1

REPORT INFORMATION
  Report Type: 
  Country: None (occurrence: None)
  Receive Date: 20090123
  Receipt Date: 20081217
  Transmission Date: 20090719
  Serious: Yes (Hospitalization)
  Sender: FDA-Public Use
  Company Number: 8041165

PATIENT
  Age: 47 Year

DRUGS (1)
  1. KEPPRA [Suspect]
     Dosage: 25000 MG /D

REACTIONS (1)
  - HOSPITALISATION [None]
